FAERS Safety Report 13612505 (Version 1)
Quarter: 2017Q2

REPORT INFORMATION
  Report Type: Spontaneous
  Country: HR (occurrence: HR)
  Receive Date: 20170605
  Receipt Date: 20170605
  Transmission Date: 20170830
  Serious: Yes (Other)
  Sender: FDA-Public Use
  Company Number: PHHY2017HR077476

PATIENT

DRUGS (3)
  1. DOXYCYCLIN [Concomitant]
     Active Substance: DOXYCYCLINE
     Indication: BOUTONNEUSE FEVER
     Dosage: 100 MG, Q12H
     Route: 065
  2. DOXYCYCLIN [Concomitant]
     Active Substance: DOXYCYCLINE
     Dosage: 200 MG, QD
     Route: 048
  3. CIPROFLOXACIN. [Suspect]
     Active Substance: CIPROFLOXACIN
     Indication: BOUTONNEUSE FEVER
     Dosage: 400 MG, Q12H
     Route: 065

REACTIONS (2)
  - Respiratory failure [Recovering/Resolving]
  - Condition aggravated [Unknown]
